FAERS Safety Report 8216481-1 (Version None)
Quarter: 2012Q1

REPORT INFORMATION
  Report Type: 
  Country: None (occurrence: None)
  Receive Date: 20120316
  Receipt Date: 20120312
  Transmission Date: 20120608
  Serious: No
  Sender: FDA-Public Use
  Company Number: NL-ABBOTT-12P-114-0915463-00

PATIENT
  Sex: Female

DRUGS (2)
  1. LEUPROLIDE ACETATE [Suspect]
     Indication: BREAST CANCER FEMALE
     Route: 058
  2. LEUPROLIDE ACETATE [Suspect]

REACTIONS (1)
  - MENSTRUAL DISORDER [None]
